FAERS Safety Report 4850519-4 (Version None)
Quarter: 2005Q4

REPORT INFORMATION
  Report Type: 
  Country: None (occurrence: None)
  Receive Date: 20051212
  Receipt Date: 20051207
  Transmission Date: 20060501
  Serious: Yes (Hospitalization)
  Sender: FDA-Public Use
  Company Number: FR-RB-2435-2005

PATIENT
  Age: 31 Year
  Sex: Male

DRUGS (1)
  1. BUPRENORPHINE HCL [Suspect]
     Indication: DRUG DEPENDENCE
     Route: 042
     Dates: start: 20000615, end: 20040424

REACTIONS (3)
  - DRUG DEPENDENCE [None]
  - ENDOCARDITIS STAPHYLOCOCCAL [None]
  - INTENTIONAL DRUG MISUSE [None]
